FAERS Safety Report 9372295 (Version 3)
Quarter: 2013Q4

REPORT INFORMATION
  Report Type: Spontaneous
  Country: US (occurrence: None)
  Receive Date: 20130611
  Receipt Date: 20131108
  Transmission Date: 20140711
  Serious: Yes (Hospitalization, Other)
  Sender: FDA-Public Use
  Company Number: 2013036387

PATIENT
  Age: 52 Year
  Sex: Female

DRUGS (10)
  1. ZEMAIRA (ALPHA-1 PROTEINASE INHIBITOR (HUMAN)) [Suspect]
     Indication: ALPHA-1 ANTI-TRYPSIN DEFICIENCY
     Route: 042
  2. CELLCEPT (MYCOPHENOLATE MOFETIL) TABLET [Suspect]
  3. RITUXAN [Suspect]
  4. VICODIN (VICODIN) [Concomitant]
  5. BENADRYL (DIPHENHYDRAMINE HYDROCHLORIDE) [Concomitant]
  6. GABAPENTIN (GABAPENTIN) [Concomitant]
  7. DAILY MULTIVITAMIN (DAILY MULTIVITAMIN) [Concomitant]
  8. ATARAX (HYDROXYZINE) [Concomitant]
  9. PREDNISONE (PREDNISONE) [Concomitant]
  10. ZOFRAN (ONDANSETRON) [Concomitant]

REACTIONS (10)
  - Drug dose omission [None]
  - Dyspnoea [None]
  - Cough [None]
  - Pulmonary congestion [None]
  - Night sweats [None]
  - Weight decreased [None]
  - Thrombocytopenia [None]
  - Leukopenia [None]
  - Pneumonia [None]
  - Atelectasis [None]
